FAERS Safety Report 21285297 (Version 1)
Quarter: 2022Q3

REPORT INFORMATION
  Report Type: Report from Study
  Country: GB (occurrence: None)
  Receive Date: 20220902
  Receipt Date: 20220902
  Transmission Date: 20221026
  Serious: Yes (Other)
  Sender: FDA-Public Use
  Company Number: GB-002147023-NVSC2019GB010527

PATIENT
  Sex: Male

DRUGS (3)
  1. METHOTREXATE [Suspect]
     Active Substance: METHOTREXATE
     Indication: Ankylosing spondylitis
     Route: 065
  2. COSENTYX [Suspect]
     Active Substance: SECUKINUMAB
     Indication: Ankylosing spondylitis
     Route: 065
     Dates: end: 202204
  3. COSENTYX [Suspect]
     Active Substance: SECUKINUMAB
     Route: 065
     Dates: start: 20190910

REACTIONS (12)
  - Prostate cancer [Not Recovered/Not Resolved]
  - Product use in unapproved indication [Unknown]
  - Dyspepsia [Recovering/Resolving]
  - Vomiting [Not Recovered/Not Resolved]
  - Abdominal mass [Not Recovered/Not Resolved]
  - Back pain [Not Recovered/Not Resolved]
  - Malaise [Not Recovered/Not Resolved]
  - Fatigue [Not Recovered/Not Resolved]
  - Pain [Not Recovered/Not Resolved]
  - Abdominal pain upper [Not Recovered/Not Resolved]
  - Dyspnoea [Not Recovered/Not Resolved]
  - Dysuria [Not Recovered/Not Resolved]

NARRATIVE: CASE EVENT DATE: 20190901
